FAERS Safety Report 17422057 (Version 1)
Quarter: 2020Q1

REPORT INFORMATION
  Report Type: Report from Study
  Country: KR (occurrence: KR)
  Receive Date: 20200214
  Receipt Date: 20200214
  Transmission Date: 20200409
  Serious: Yes (Other)
  Sender: FDA-Public Use
  Company Number: KR-ROCHE-2458751

PATIENT
  Age: 64 Year
  Sex: Male
  Weight: 65 kg

DRUGS (21)
  1. ATEZOLIZUMAB. [Suspect]
     Active Substance: ATEZOLIZUMAB
     Route: 042
     Dates: start: 20190916
  2. ATEZOLIZUMAB. [Suspect]
     Active Substance: ATEZOLIZUMAB
     Route: 042
     Dates: start: 20200106
  3. DICODE [Concomitant]
     Indication: CANCER PAIN
     Route: 065
     Dates: start: 20190826
  4. CODAEWON FORTE [Concomitant]
     Indication: COUGH
     Route: 065
     Dates: start: 20180826
  5. ATEZOLIZUMAB. [Suspect]
     Active Substance: ATEZOLIZUMAB
     Route: 042
     Dates: start: 20191104
  6. PENIRAMIN [Concomitant]
     Route: 065
     Dates: start: 20190916, end: 20190916
  7. ATEZOLIZUMAB. [Suspect]
     Active Substance: ATEZOLIZUMAB
     Indication: NON-SMALL CELL LUNG CANCER
     Route: 042
     Dates: start: 20190805
  8. PENIRAMIN [Concomitant]
     Indication: PROPHYLAXIS
     Route: 065
     Dates: start: 20190805, end: 20190805
  9. PENIRAMIN [Concomitant]
     Route: 065
     Dates: start: 20191014, end: 20191014
  10. PENIRAMIN [Concomitant]
     Route: 065
     Dates: start: 20191125, end: 20191125
  11. PENIRAMIN [Concomitant]
     Route: 065
     Dates: start: 20200128, end: 20200128
  12. KALIMATE [Concomitant]
     Active Substance: CALCIUM POLYSTYRENE SULFONATE
     Indication: HYPERKALAEMIA
     Route: 065
     Dates: start: 20190826, end: 20190901
  13. ATEZOLIZUMAB. [Suspect]
     Active Substance: ATEZOLIZUMAB
     Route: 042
     Dates: start: 20191014
  14. PENIRAMIN [Concomitant]
     Route: 065
     Dates: start: 20190826, end: 20190826
  15. PENIRAMIN [Concomitant]
     Route: 065
     Dates: start: 20191216, end: 20191216
  16. PENIRAMIN [Concomitant]
     Route: 065
     Dates: start: 20200106, end: 20200106
  17. ATEZOLIZUMAB. [Suspect]
     Active Substance: ATEZOLIZUMAB
     Route: 042
     Dates: start: 20191125
  18. ATEZOLIZUMAB. [Suspect]
     Active Substance: ATEZOLIZUMAB
     Route: 042
     Dates: start: 20191216
  19. ATEZOLIZUMAB. [Suspect]
     Active Substance: ATEZOLIZUMAB
     Route: 042
     Dates: start: 20200128
  20. PENIRAMIN [Concomitant]
     Route: 065
     Dates: start: 20191104, end: 20191104
  21. ATEZOLIZUMAB. [Suspect]
     Active Substance: ATEZOLIZUMAB
     Route: 042
     Dates: start: 20190826

REACTIONS (2)
  - Constipation [Not Recovered/Not Resolved]
  - Hyperkalaemia [Not Recovered/Not Resolved]

NARRATIVE: CASE EVENT DATE: 20190826
